FAERS Safety Report 14515167 (Version 2)
Quarter: 2018Q3

REPORT INFORMATION
  Report Type: Report from Study
  Country: JP (occurrence: JP)
  Receive Date: 20180210
  Receipt Date: 20180718
  Transmission Date: 20181010
  Serious: Yes (Hospitalization, Other)
  Sender: FDA-Public Use
  Company Number: JP-AMGEN-JPNNI2018019132

PATIENT
  Age: 74 Year
  Sex: Female

DRUGS (1)
  1. CINACALCET HCL [Suspect]
     Active Substance: CINACALCET HYDROCHLORIDE
     Indication: PRODUCT USED FOR UNKNOWN INDICATION
     Dosage: UNK
     Route: 048
     Dates: start: 20161209

REACTIONS (7)
  - Anaemia [Unknown]
  - Arteriovenous fistula site haemorrhage [Recovering/Resolving]
  - Gallbladder disorder [Recovering/Resolving]
  - Hospitalisation [Recovering/Resolving]
  - Arthritis infective [Recovering/Resolving]
  - Hospitalisation [Unknown]
  - Hospitalisation [Recovering/Resolving]

NARRATIVE: CASE EVENT DATE: 20170729
